FAERS Safety Report 20666306 (Version 1)
Quarter: 2022Q2

REPORT INFORMATION
  Report Type: Spontaneous
  Country: US (occurrence: US)
  Receive Date: 20220403
  Receipt Date: 20220403
  Transmission Date: 20220721
  Serious: No
  Sender: FDA-Public Use
  Company Number: US-SA-SAC20220329000636

PATIENT
  Sex: Female

DRUGS (6)
  1. DUPIXENT [Suspect]
     Active Substance: DUPILUMAB
     Indication: Dermatitis atopic
     Dosage: 300 MG, QOW
     Route: 058
     Dates: start: 20200206
  2. CITALOPRAM [Concomitant]
     Active Substance: CITALOPRAM HYDROBROMIDE
     Dosage: 40 MG
  3. LISINOPRIL [Concomitant]
     Active Substance: LISINOPRIL
     Dosage: 40 MG
  4. SIMVASTATIN [Concomitant]
     Active Substance: SIMVASTATIN
  5. TRAZODONE [Concomitant]
     Active Substance: TRAZODONE HYDROCHLORIDE
     Dosage: 50 MG
  6. LEVOTHYROXINE [Concomitant]
     Active Substance: LEVOTHYROXINE
     Dosage: 25 UG

REACTIONS (1)
  - Injection site bruising [Recovering/Resolving]
